FAERS Safety Report 8503351-4 (Version None)
Quarter: 2012Q3

REPORT INFORMATION
  Report Type: 
  Country: None (occurrence: None)
  Receive Date: 20120711
  Receipt Date: 20120702
  Transmission Date: 20120928
  Serious: Yes (Other)
  Sender: FDA-Public Use
  Company Number: US-ASTRAZENECA-2012SE45078

PATIENT
  Age: 78 Year
  Sex: Female

DRUGS (1)
  1. SYMBICORT [Suspect]
     Route: 055

REACTIONS (4)
  - ACCIDENT [None]
  - CEREBRAL THROMBOSIS [None]
  - DYSPNOEA [None]
  - BRONCHITIS [None]
